FAERS Safety Report 19731851 (Version 9)
Quarter: 2023Q4

REPORT INFORMATION
  Report Type: Report from Study
  Country: BE (occurrence: BE)
  Receive Date: 20210820
  Receipt Date: 20231214
  Transmission Date: 20240110
  Serious: Yes (Hospitalization, Other)
  Sender: FDA-Public Use
  Company Number: BE-BIOGEN-2021BI01039837

PATIENT
  Age: 65 Year
  Sex: Male

DRUGS (29)
  1. TYSABRI [Suspect]
     Active Substance: NATALIZUMAB
     Indication: Multiple sclerosis
     Route: 050
     Dates: start: 20120913
  2. TYSABRI [Suspect]
     Active Substance: NATALIZUMAB
     Route: 050
     Dates: start: 20120913
  3. DALFAMPRIDINE [Suspect]
     Active Substance: DALFAMPRIDINE
     Indication: Product used for unknown indication
     Route: 050
  4. BACLOFEN [Concomitant]
     Active Substance: BACLOFEN
     Indication: Product used for unknown indication
     Route: 050
  5. BACLOFEN [Concomitant]
     Active Substance: BACLOFEN
     Dosage: 12H
     Route: 050
  6. BACLOFEN [Concomitant]
     Active Substance: BACLOFEN
     Dosage: HS PRN
     Route: 050
  7. BACLOFEN [Concomitant]
     Active Substance: BACLOFEN
     Route: 050
  8. LISINOPRIL [Concomitant]
     Active Substance: LISINOPRIL
     Indication: Product used for unknown indication
     Route: 050
  9. LYRICA [Concomitant]
     Active Substance: PREGABALIN
     Indication: Product used for unknown indication
     Route: 050
  10. OXYBUTYNIN [Concomitant]
     Active Substance: OXYBUTYNIN
     Indication: Product used for unknown indication
     Route: 050
  11. OXYBUTYNIN [Concomitant]
     Active Substance: OXYBUTYNIN
     Dosage: 5 MG EVERY DAY: 3 X 0.5 TABS
     Route: 050
  12. THIAMINE HYDROCHLORIDE [Concomitant]
     Active Substance: THIAMINE HYDROCHLORIDE
     Indication: Product used for unknown indication
     Route: 050
  13. EFFEXOR XR [Concomitant]
     Active Substance: VENLAFAXINE HYDROCHLORIDE
     Indication: Product used for unknown indication
     Route: 050
  14. CRANBERRY [Concomitant]
     Active Substance: CRANBERRY
     Indication: Product used for unknown indication
     Route: 050
  15. CHOLECALCIFEROL [Concomitant]
     Active Substance: CHOLECALCIFEROL
     Indication: Product used for unknown indication
     Dosage: 1A/2WEEKS
     Route: 050
  16. NIFURTOINOL [Concomitant]
     Active Substance: NIFURTOINOL
     Indication: Product used for unknown indication
     Dosage: 7D/MOMTH
     Route: 050
  17. Daflon [Concomitant]
     Indication: Product used for unknown indication
     Route: 050
  18. ACETAMINOPHEN [Concomitant]
     Active Substance: ACETAMINOPHEN
     Indication: Product used for unknown indication
     Dosage: PRN
     Route: 050
  19. FURADANTIN [Concomitant]
     Active Substance: NITROFURANTOIN
     Indication: Product used for unknown indication
     Route: 050
  20. FOLIC ACID [Concomitant]
     Active Substance: FOLIC ACID
     Indication: Product used for unknown indication
     Route: 050
  21. Enterol Bicodex Benelux [Concomitant]
     Indication: Product used for unknown indication
     Dosage: 2 X 250 MG
     Route: 050
  22. GELATIN [Concomitant]
     Active Substance: GELATIN
     Indication: Product used for unknown indication
     Route: 050
  23. ACETAMINOPHEN [Concomitant]
     Active Substance: ACETAMINOPHEN
     Indication: Product used for unknown indication
     Route: 050
  24. CETIRIZINE [Concomitant]
     Active Substance: CETIRIZINE HYDROCHLORIDE
     Indication: Product used for unknown indication
     Dosage: CETIRIZINE 10 MG EVERY DAY: 0.5 TABS
     Route: 050
  25. ENOXAPARIN SODIUM [Concomitant]
     Active Substance: ENOXAPARIN SODIUM
     Indication: Product used for unknown indication
     Dosage: CLEXANE 40 MG 10 AMP SER EVERY DAY: 1 INJECTABLE SYRINGE
     Route: 050
  26. PERINDOPRIL [Concomitant]
     Active Substance: PERINDOPRIL
     Indication: Product used for unknown indication
     Dosage: COVERSYL 5 MG EVERY DAY: 1 TAB
     Route: 050
  27. MOMETASONE FUROATE [Concomitant]
     Active Substance: MOMETASONE FUROATE
     Indication: Product used for unknown indication
     Dosage: ELOCOM LIPOCREME20 G EVERY DAY: 1 APPLICATION
     Route: 050
  28. NITROFURANTOIN [Concomitant]
     Active Substance: NITROFURANTOIN
     Indication: Product used for unknown indication
     Dosage: FURADANTINE 100 MG EVERY DAY: 3 X 1 CAPSULE
     Route: 050
  29. TOPIALYSE [Concomitant]
     Indication: Product used for unknown indication
     Dosage: TOPIALYSE CREAM 400ML EVERY DAY: 1 APPLICATION
     Route: 050

REACTIONS (4)
  - Escherichia pyelonephritis [Recovered/Resolved]
  - Sepsis [Unknown]
  - Proteus infection [Recovered/Resolved]
  - Neurogenic bladder [Unknown]

NARRATIVE: CASE EVENT DATE: 20210524
